FAERS Safety Report 20544677 (Version 1)
Quarter: 2022Q1

REPORT INFORMATION
  Report Type: Spontaneous
  Country: CN (occurrence: CN)
  Receive Date: 20220303
  Receipt Date: 20220303
  Transmission Date: 20220424
  Serious: Yes (Hospitalization)
  Sender: FDA-Public Use
  Company Number: CN-ABBVIE-22K-035-4297432-00

PATIENT
  Age: 20 Year
  Sex: Female
  Weight: 57 kg

DRUGS (7)
  1. VALPROATE SODIUM [Suspect]
     Active Substance: VALPROATE SODIUM
     Indication: Mania
     Route: 048
     Dates: start: 20190729, end: 20190827
  2. OLANZAPINE [Suspect]
     Active Substance: OLANZAPINE
     Indication: Mania
     Route: 048
     Dates: start: 20190729, end: 20190820
  3. OLANZAPINE [Suspect]
     Active Substance: OLANZAPINE
     Route: 065
  4. HALOPERIDOL [Suspect]
     Active Substance: HALOPERIDOL
     Indication: Mania
     Route: 030
     Dates: start: 20190730, end: 20190801
  5. HALOPERIDOL [Suspect]
     Active Substance: HALOPERIDOL
     Route: 030
     Dates: start: 20190802, end: 201908
  6. HALOPERIDOL [Suspect]
     Active Substance: HALOPERIDOL
     Route: 030
     Dates: start: 20190808, end: 201908
  7. HALOPERIDOL [Suspect]
     Active Substance: HALOPERIDOL
     Route: 030
     Dates: start: 20190814

REACTIONS (1)
  - Somnolence [Recovering/Resolving]

NARRATIVE: CASE EVENT DATE: 20190801
